FAERS Safety Report 22047148 (Version 1)
Quarter: 2023Q1

REPORT INFORMATION
  Report Type: Other
  Country: CN (occurrence: None)
  Receive Date: 20230301
  Receipt Date: 20230301
  Transmission Date: 20230417
  Serious: Yes (Other)
  Sender: FDA-Public Use
  Company Number: CN-ROCHE-3293588

PATIENT
  Age: 22 Year
  Sex: Male

DRUGS (4)
  1. RITUXIMAB [Suspect]
     Active Substance: RITUXIMAB
     Indication: Encephalitis autoimmune
     Route: 042
  2. PROMETHAZINE [Concomitant]
     Active Substance: PROMETHAZINE HYDROCHLORIDE
  3. DEXAMETHASONE [Concomitant]
     Active Substance: DEXAMETHASONE
  4. PREDNISONE [Concomitant]
     Active Substance: PREDNISONE

REACTIONS (4)
  - Liver injury [Recovering/Resolving]
  - Epistaxis [Recovering/Resolving]
  - Bacteraemia [Recovering/Resolving]
  - Off label use [Unknown]
